FAERS Safety Report 5361502-7 (Version None)
Quarter: 2007Q2

REPORT INFORMATION
  Report Type: 
  Country: None (occurrence: None)
  Receive Date: 20070530
  Receipt Date: 20070122
  Transmission Date: 20071010
  Serious: No
  Sender: FDA-Public Use
  Company Number: 2007PV027544

PATIENT
  Age: 36 Year
  Sex: Male
  Weight: 99.7913 kg

DRUGS (5)
  1. BYETTA [Suspect]
     Indication: DIABETES MELLITUS NON-INSULIN-DEPENDENT
     Dosage: 5 MCG;BID;SC ; 10 MCG;BID;SC ; 5 MCG;BID;SC
     Route: 058
     Dates: start: 20061208, end: 20070101
  2. BYETTA [Suspect]
     Indication: DIABETES MELLITUS NON-INSULIN-DEPENDENT
     Dosage: 5 MCG;BID;SC ; 10 MCG;BID;SC ; 5 MCG;BID;SC
     Route: 058
     Dates: start: 20061201, end: 20070103
  3. BYETTA [Suspect]
     Indication: DIABETES MELLITUS NON-INSULIN-DEPENDENT
     Dosage: 5 MCG;BID;SC ; 10 MCG;BID;SC ; 5 MCG;BID;SC
     Route: 058
     Dates: start: 20070104
  4. PREDNISONE [Suspect]
     Dates: start: 20061201, end: 20061227
  5. GLUCOPHAGE [Concomitant]

REACTIONS (4)
  - BLOOD GLUCOSE INCREASED [None]
  - INJECTION SITE HAEMORRHAGE [None]
  - RASH [None]
  - TOOTH INFECTION [None]
